FAERS Safety Report 12039530 (Version 1)
Quarter: 2016Q1

REPORT INFORMATION
  Report Type: Spontaneous
  Country: US (occurrence: None)
  Receive Date: 20160205
  Receipt Date: 20160205
  Transmission Date: 20160526
  Serious: Yes (Other)
  Sender: FDA-Public Use
  Company Number: None

PATIENT
  Age: 18 Year
  Sex: Male
  Weight: 47.6 kg

DRUGS (28)
  1. ORKAMBI [Suspect]
     Active Substance: IVACAFTOR\LUMACAFTOR
     Indication: CYSTIC FIBROSIS
     Route: 048
     Dates: start: 20150710, end: 20160204
  2. CPAP [Concomitant]
     Active Substance: DEVICE
  3. ORTHOPEDIC SCOOTER [Concomitant]
  4. UROSODIOL [Concomitant]
  5. SODIUM CHLORIDE. [Concomitant]
     Active Substance: SODIUM CHLORIDE
  6. LEVALBUTEROL. [Concomitant]
     Active Substance: LEVALBUTEROL
  7. DNASE [Concomitant]
     Active Substance: DEOXYRIBONUCLIEC ACID
  8. ZENPEP [Concomitant]
     Active Substance: PANCRELIPASE AMYLASE\PANCRELIPASE LIPASE\PANCRELIPASE PROTEASE
  9. NORCO [Concomitant]
     Active Substance: ACETAMINOPHEN\HYDROCODONE BITARTRATE
  10. CITALOPRAM [Concomitant]
     Active Substance: CITALOPRAM HYDROBROMIDE
  11. CYPROHEPTADINE. [Concomitant]
     Active Substance: CYPROHEPTADINE
  12. GABAPENTIN. [Concomitant]
     Active Substance: GABAPENTIN
  13. CAYSTON [Concomitant]
     Active Substance: AZTREONAM
  14. CALCIUM CARBONATE. [Concomitant]
     Active Substance: CALCIUM CARBONATE
  15. L-TAURINE [Concomitant]
  16. AQUADEKS [Concomitant]
  17. VITAMIN D [Concomitant]
     Active Substance: CHOLECALCIFEROL
  18. OMEPRAZOLE. [Concomitant]
     Active Substance: OMEPRAZOLE
  19. TOBRAMYCIN. [Concomitant]
     Active Substance: TOBRAMYCIN
  20. MIRALAX [Concomitant]
     Active Substance: POLYETHYLENE GLYCOL 3350
  21. TYLENOL [Concomitant]
     Active Substance: ACETAMINOPHEN
  22. BECLOMETHASONE [Concomitant]
     Active Substance: BECLOMETHASONE
  23. LACTOBACILLUS [Concomitant]
     Active Substance: LACTOBACILLUS ACIDOPHILUS
  24. ZINC [Concomitant]
     Active Substance: ZINC\ZINC CHLORIDE
  25. IBUPROFEN. [Concomitant]
     Active Substance: IBUPROFEN
  26. VITAMIN E [Concomitant]
     Active Substance: .ALPHA.-TOCOPHEROL
  27. VITAMIN D [Concomitant]
     Active Substance: CHOLECALCIFEROL
  28. PHYTONADIONE. [Concomitant]
     Active Substance: PHYTONADIONE

REACTIONS (4)
  - Alanine aminotransferase increased [None]
  - Lung disorder [None]
  - Condition aggravated [None]
  - Aspartate aminotransferase increased [None]

NARRATIVE: CASE EVENT DATE: 20160202
